FAERS Safety Report 6154866-8 (Version None)
Quarter: 2009Q2

REPORT INFORMATION
  Report Type: 
  Country: None (occurrence: None)
  Receive Date: 20090414
  Receipt Date: 20090402
  Transmission Date: 20091009
  Serious: Yes (Other)
  Sender: FDA-Public Use
  Company Number: US-PFIZER INC-2009193710

PATIENT
  Sex: Female
  Weight: 68.934 kg

DRUGS (1)
  1. CHANTIX [Suspect]
     Indication: SMOKING CESSATION THERAPY
     Dosage: 1 MG, 2X/DAY
     Route: 048
     Dates: start: 20090201, end: 20090101

REACTIONS (4)
  - ALTERED VISUAL DEPTH PERCEPTION [None]
  - ANXIETY [None]
  - IMPAIRED DRIVING ABILITY [None]
  - PANIC ATTACK [None]
